FAERS Safety Report 10067836 (Version 1)
Quarter: 2014Q1

REPORT INFORMATION
  Report Type: Spontaneous
  Country: US (occurrence: None)
  Receive Date: 20140328
  Receipt Date: 20140328
  Transmission Date: 20141002
  Serious: No
  Sender: FDA-Public Use
  Company Number: 1000053024

PATIENT
  Sex: Female

DRUGS (6)
  1. LINZESS (LINACLOTIDE) (145 MICROGRAM, CAPSULES) [Suspect]
     Indication: CONSTIPATION
     Route: 048
     Dates: start: 20140120, end: 20140120
  2. BUPROPION (BUPROPION) (BUPROPION) [Concomitant]
  3. LUNESTA [Concomitant]
  4. LEVOTHYROXINE (LEVOTHYROXINE SODIUM) (LEVOTHYROXINE SODIUM) [Concomitant]
  5. VITAMIN D (VITAMINE D) (VITAMIN D) [Concomitant]
  6. DOXEPIN (DOXEPIN) (DOXEPIN) [Concomitant]

REACTIONS (3)
  - Diarrhoea [None]
  - Flatulence [None]
  - Muscle spasms [None]
